FAERS Safety Report 8808657 (Version 1)
Quarter: 2012Q4

REPORT INFORMATION
  Report Type: Spontaneous
  Country: US (occurrence: None)
  Receive Date: 20120921
  Receipt Date: 20120921
  Transmission Date: 20130627
  Serious: No
  Sender: FDA-Public Use
  Company Number: None

PATIENT
  Age: 68 Year
  Sex: Female
  Weight: 65.77 kg

DRUGS (8)
  1. AZITHROMYCIN [Suspect]
     Indication: STY
     Dates: start: 201308
  2. AZITHROMYCIN [Suspect]
     Indication: INFECTION
     Dates: start: 201308
  3. AZITHROMYCIN [Suspect]
     Indication: STY
     Dates: start: 201408
  4. AZITHROMYCIN [Suspect]
     Indication: INFECTION
     Dates: start: 201408
  5. AZITHROMYCIN [Suspect]
     Indication: STY
     Dates: start: 201508
  6. AZITHROMYCIN [Suspect]
     Indication: INFECTION
     Dates: start: 201508
  7. AZITHROMYCIN [Suspect]
     Indication: STY
     Dates: start: 201608
  8. AZITHROMYCIN [Suspect]
     Indication: INFECTION
     Dates: start: 201608

REACTIONS (4)
  - Burning sensation [None]
  - Paraesthesia [None]
  - Palpitations [None]
  - Fear [None]
